FAERS Safety Report 22077903 (Version 2)
Quarter: 2023Q1

REPORT INFORMATION
  Report Type: Report from Study
  Country: BR (occurrence: BR)
  Receive Date: 20230309
  Receipt Date: 20230317
  Transmission Date: 20230417
  Serious: Yes (Other)
  Sender: FDA-Public Use
  Company Number: BR-ABBVIE-4332271

PATIENT
  Sex: Female
  Weight: 70 kg

DRUGS (1)
  1. RINVOQ [Suspect]
     Active Substance: UPADACITINIB
     Indication: Dermatitis atopic
     Dosage: 1 DOSAGE FORMS
     Route: 048
     Dates: start: 20220809

REACTIONS (5)
  - Intervertebral disc protrusion [Unknown]
  - Pruritus [Unknown]
  - Oesophagitis bacterial [Unknown]
  - Skin irritation [Unknown]
  - Gastritis bacterial [Unknown]
